FAERS Safety Report 6500301-7 (Version None)
Quarter: 2009Q4

REPORT INFORMATION
  Report Type: 
  Country: None (occurrence: None)
  Receive Date: 20091215
  Receipt Date: 20091215
  Transmission Date: 20100525
  Serious: Yes (Hospitalization)
  Sender: FDA-Public Use
  Company Number: None

PATIENT
  Age: 62 Year
  Sex: Male
  Weight: 63.96 kg

DRUGS (1)
  1. HEPARIN SODIUM 1,000 UNITS IN SODIUM CHLORIDE 0.9% [Suspect]
     Indication: DEEP VEIN THROMBOSIS
     Dosage: 1150 UNITS PER HOUR IV
     Route: 042
     Dates: start: 20090722, end: 20090724

REACTIONS (4)
  - ACTIVATED PARTIAL THROMBOPLASTIN TIME PROLONGED [None]
  - HAEMATOCRIT DECREASED [None]
  - HAEMOGLOBIN DECREASED [None]
  - INTERNATIONAL NORMALISED RATIO DECREASED [None]
